FAERS Safety Report 5578567-X (Version None)
Quarter: 2007Q4

REPORT INFORMATION
  Report Type: 
  Country: None (occurrence: None)
  Receive Date: 20071227
  Receipt Date: 20071221
  Transmission Date: 20080405
  Serious: Yes (Death, Other)
  Sender: FDA-Public Use
  Company Number: 2006SP005999

PATIENT
  Age: 69 Year
  Sex: Male
  Weight: 49 kg

DRUGS (7)
  1. TEMODAL [Suspect]
     Indication: OLIGODENDROGLIOMA
     Dosage: 150 MG/M2; QD; PO
     Route: 048
     Dates: start: 20061013, end: 20061017
  2. ACNU [Concomitant]
  3. ONCOVIN [Concomitant]
  4. ONCOVIN [Concomitant]
  5. NATULAN [Concomitant]
  6. DEPAKENE [Concomitant]
  7. ZONISAMIDE [Concomitant]

REACTIONS (8)
  - CONDITION AGGRAVATED [None]
  - DISEASE PROGRESSION [None]
  - DISSEMINATED INTRAVASCULAR COAGULATION [None]
  - MALIGNANT OLIGODENDROGLIOMA [None]
  - MELAENA [None]
  - MULTI-ORGAN FAILURE [None]
  - SHOCK [None]
  - THROMBOCYTOPENIA [None]
